FAERS Safety Report 18041303 (Version 1)
Quarter: 2020Q3

REPORT INFORMATION
  Report Type: Report from Study
  Country: IN (occurrence: IN)
  Receive Date: 20200719
  Receipt Date: 20200719
  Transmission Date: 20201103
  Serious: Yes (Other)
  Sender: FDA-Public Use
  Company Number: NVSC2020IN086810

PATIENT
  Age: 31 Year
  Sex: Male
  Weight: 102 kg

DRUGS (1)
  1. GALVUS MET [Suspect]
     Active Substance: METFORMIN HYDROCHLORIDE\VILDAGLIPTIN
     Indication: DIABETES MELLITUS
     Dosage: 1 DF, QD (METFORMIN 1000MG, VILDAGLIPTIN 50MG) SINCE 2.5 YEARS
     Route: 048

REACTIONS (7)
  - Body mass index increased [Unknown]
  - Headache [Not Recovered/Not Resolved]
  - Glycosylated haemoglobin increased [Unknown]
  - Anxiety [Not Recovered/Not Resolved]
  - Anger [Not Recovered/Not Resolved]
  - Hyperglycaemia [Unknown]
  - Dizziness [Not Recovered/Not Resolved]

NARRATIVE: CASE EVENT DATE: 20200324
